FAERS Safety Report 10146255 (Version 1)
Quarter: 2014Q2

REPORT INFORMATION
  Report Type: Spontaneous
  Country: US (occurrence: None)
  Receive Date: 20140430
  Receipt Date: 20140430
  Transmission Date: 20141212
  Serious: Yes (Disabling)
  Sender: FDA-Public Use
  Company Number: None

PATIENT
  Age: 28 Year
  Sex: Female
  Weight: 63.5 kg

DRUGS (1)
  1. DEPO PROVERA [Suspect]
     Indication: CONTRACEPTION
     Dosage: 1 SHOT?ONCE EVERY 3 MONTH?INTO THE MUSCLE
     Dates: start: 20130715, end: 20131015

REACTIONS (2)
  - Acne cystic [None]
  - Rosacea [None]
